FAERS Safety Report 13351238 (Version 1)
Quarter: 2017Q1

REPORT INFORMATION
  Report Type: Other
  Country: AU (occurrence: AU)
  Receive Date: 20170320
  Receipt Date: 20170320
  Transmission Date: 20170429
  Serious: Yes (Hospitalization)
  Sender: FDA-Public Use
  Company Number: AU-ETHYPHARM USA CORP-EY-BP-AU-2017-003

PATIENT
  Age: 85 Year
  Sex: Female

DRUGS (4)
  1. BUPRENORPHINE HYDROCHLORIDE. [Suspect]
     Active Substance: BUPRENORPHINE HYDROCHLORIDE
     Indication: ANALGESIC THERAPY
     Route: 060
  2. FENTANYL. [Concomitant]
     Active Substance: FENTANYL
  3. PROPOFOL. [Concomitant]
     Active Substance: PROPOFOL
  4. REMIFENTANIL [Concomitant]
     Active Substance: REMIFENTANIL

REACTIONS (3)
  - Respiratory depression [Recovered/Resolved]
  - Depressed level of consciousness [Recovered/Resolved]
  - Off label use [Recovered/Resolved]
